FAERS Safety Report 6204268-0 (Version None)
Quarter: 2009Q2

REPORT INFORMATION
  Report Type: 
  Country: None (occurrence: None)
  Receive Date: 20090522
  Receipt Date: 20090515
  Transmission Date: 20091009
  Serious: Yes (Other)
  Sender: FDA-Public Use
  Company Number: 60376

PATIENT
  Sex: Male

DRUGS (1)
  1. METHOTREXATE [Suspect]
     Dosage: 1ML

REACTIONS (2)
  - MEDICATION ERROR [None]
  - WRONG TECHNIQUE IN DRUG USAGE PROCESS [None]
